FAERS Safety Report 6694347-6 (Version None)
Quarter: 2010Q2

REPORT INFORMATION
  Report Type: 
  Country: None (occurrence: None)
  Receive Date: 20100423
  Receipt Date: 20100414
  Transmission Date: 20101027
  Serious: Yes (Death)
  Sender: FDA-Public Use
  Company Number: US-AMGEN-QUU406097

PATIENT
  Sex: Male

DRUGS (5)
  1. NPLATE [Suspect]
     Indication: IDIOPATHIC THROMBOCYTOPENIC PURPURA
     Dates: start: 20090520
  2. CORTICOSTEROIDS [Concomitant]
     Dates: start: 20090423
  3. IMMU-G [Concomitant]
     Dates: start: 20090201
  4. RITUXIMAB [Concomitant]
     Dates: start: 20090423
  5. PROMACTA [Concomitant]
     Dates: start: 20090406

REACTIONS (1)
  - DEATH [None]
